FAERS Safety Report 23880738 (Version 1)
Quarter: 2024Q2

REPORT INFORMATION
  Report Type: Spontaneous
  Country: IE (occurrence: IE)
  Receive Date: 20240521
  Receipt Date: 20240521
  Transmission Date: 20240716
  Serious: Yes (Life-Threatening, Hospitalization, Disabling, Other)
  Sender: FDA-Public Use
  Company Number: None

PATIENT
  Age: 60 Year
  Sex: Male

DRUGS (7)
  1. JARDIANCE [Suspect]
     Active Substance: EMPAGLIFLOZIN
     Indication: Type 2 diabetes mellitus
     Route: 048
     Dates: start: 20220801
  2. EUMOVATE [Concomitant]
     Active Substance: CLOBETASONE BUTYRATE
     Indication: Lichen planus
     Dosage: 0.05% CREAM
     Route: 062
     Dates: start: 20190718
  3. THORENS 25 000 I.U. /2.5 ml [Concomitant]
     Indication: Vitamin D deficiency
     Route: 048
     Dates: start: 20220725
  4. JANUMET 50 MG/1000 MG FILM-COATED TABLETS [Concomitant]
     Indication: Product used for unknown indication
     Dosage: TAKING JANUMET ONLY ONCE DAILY DESPITE BEING PRESCRIBED TWICE DAILY, HCP ASKED THE PATIENT TO ESCALA
     Route: 048
     Dates: start: 201610
  5. JANUMET 50 MG/1000 MG FILM-COATED TABLETS [Concomitant]
     Dosage: 50 MG + 1000 MG
     Route: 048
     Dates: start: 20170216
  6. GLICLAZIDE [Concomitant]
     Active Substance: GLICLAZIDE
     Indication: Product used for unknown indication
     Route: 048
     Dates: start: 20170216
  7. ROSUVASTATIN [Concomitant]
     Active Substance: ROSUVASTATIN
     Indication: Blood cholesterol increased
     Route: 048
     Dates: start: 20220725

REACTIONS (12)
  - Condition aggravated [Not Recovered/Not Resolved]
  - Loss of personal independence in daily activities [Not Recovered/Not Resolved]
  - Vertigo [Not Recovered/Not Resolved]
  - Product prescribing issue [Unknown]
  - Ketoacidosis [Not Recovered/Not Resolved]
  - Bulbospinal muscular atrophy congenital [Not Recovered/Not Resolved]
  - Coma [Recovered/Resolved]
  - Blood glucose decreased [Not Recovered/Not Resolved]
  - Malaise [Not Recovered/Not Resolved]
  - Urinary incontinence [Not Recovered/Not Resolved]
  - Anal incontinence [Not Recovered/Not Resolved]
  - Asthenia [Not Recovered/Not Resolved]

NARRATIVE: CASE EVENT DATE: 20220801
